FAERS Safety Report 7520378-X (Version None)
Quarter: 2011Q2

REPORT INFORMATION
  Report Type: 
  Country: None (occurrence: None)
  Receive Date: 20110602
  Receipt Date: 20110519
  Transmission Date: 20111010
  Serious: Yes (Other)
  Sender: FDA-Public Use
  Company Number: US-WATSON-2011-07180

PATIENT
  Age: 32 Year
  Sex: Female

DRUGS (3)
  1. LEVONORDEFRIN [Suspect]
     Indication: DENTAL CARE
     Dosage: 1:20,000
  2. PROPRANOLOL [Suspect]
     Indication: ARRHYTHMIA
     Dosage: 60 MG, DAILY
     Route: 065
  3. MEPIVACAINE HYDROCHLORIDE (WATSON LABORATORIES) [Suspect]
     Indication: DENTAL CARE
     Dosage: 1.5 CARTRIGES OF 2%

REACTIONS (2)
  - HYPERTENSIVE CRISIS [None]
  - DRUG INTERACTION [None]
